FAERS Safety Report 8771008 (Version 2)
Quarter: 2013Q4

REPORT INFORMATION
  Report Type: Spontaneous
  Country: NZ (occurrence: NZ)
  Receive Date: 20120906
  Receipt Date: 20131031
  Transmission Date: 20140711
  Serious: Yes (Hospitalization)
  Sender: FDA-Public Use
  Company Number: NZ-009507513-1209NZL000493

PATIENT
  Age: 77 Year
  Sex: Female

DRUGS (3)
  1. FOSAMAX [Suspect]
     Dosage: 70 MG, QW
     Route: 048
  2. CARBIDOPA (+) LEVODOPA [Concomitant]
     Indication: PARKINSON^S DISEASE
     Dosage: UNK, QD
     Route: 048
  3. OMEPRAZOLE [Concomitant]
     Route: 048

REACTIONS (2)
  - Osteonecrosis [Not Recovered/Not Resolved]
  - Pain in jaw [Not Recovered/Not Resolved]
